FAERS Safety Report 4861443-5 (Version None)
Quarter: 2005Q4

REPORT INFORMATION
  Report Type: 
  Country: None (occurrence: None)
  Receive Date: 20051220
  Receipt Date: 20051209
  Transmission Date: 20060501
  Serious: Yes (Other)
  Sender: FDA-Public Use
  Company Number: US-JNJFOC-20051204267

PATIENT
  Sex: Female

DRUGS (1)
  1. ORTHO EVRA [Suspect]
     Indication: MENSTRUATION IRREGULAR
     Route: 062

REACTIONS (2)
  - OFF LABEL USE [None]
  - VASCULAR OCCLUSION [None]
